FAERS Safety Report 9665851 (Version 1)
Quarter: 2013Q4

REPORT INFORMATION
  Report Type: Spontaneous
  Country: US (occurrence: None)
  Receive Date: 20131031
  Receipt Date: 20131031
  Transmission Date: 20140711
  Serious: No
  Sender: FDA-Public Use
  Company Number: None

PATIENT
  Age: 72 None
  Sex: Male
  Weight: 90.72 kg

DRUGS (11)
  1. PROAIR HFA [Suspect]
     Indication: BRONCHITIS
     Dosage: 2 PUFFS TAKEN 1-3 X DAY. WORST REACTION HAPPENS AT BEDTIME.
     Route: 055
     Dates: start: 20131008, end: 20131012
  2. PROAIR HFA [Suspect]
     Dosage: 2 PUFFS TAKEN 1-3 X DAY. WORST REACTION HAPPENS AT BEDTIME.
     Route: 055
     Dates: start: 20131008, end: 20131012
  3. LISINOPRIL [Concomitant]
  4. CLOZANEPAM [Concomitant]
  5. VERAPAMIL [Concomitant]
  6. ASPIRIN [Concomitant]
  7. MULTIVITAMIN W/MINERALS [Concomitant]
  8. FISH OIL 1000 [Concomitant]
  9. SUPER B COMPLEX [Concomitant]
  10. GLUCOSAMINE AND HCI [Concomitant]
  11. TERAZOSIN [Concomitant]

REACTIONS (3)
  - Cough [None]
  - Retching [None]
  - Rhinorrhoea [None]
